FAERS Safety Report 18415562 (Version 1)
Quarter: 2020Q4

REPORT INFORMATION
  Report Type: Spontaneous
  Country: US (occurrence: US)
  Receive Date: 20201022
  Receipt Date: 20201022
  Transmission Date: 20210114
  Serious: Yes (Other)
  Sender: FDA-Public Use
  Company Number: None

PATIENT
  Age: 55 Year
  Sex: Male
  Weight: 77 kg

DRUGS (11)
  1. METHYLPREDNISOLONE 45MG [Concomitant]
     Dates: start: 20200708
  2. CEFEPIME [Concomitant]
     Active Substance: CEFEPIME HYDROCHLORIDE
     Dates: start: 20200708, end: 20200710
  3. FAMOTIDINE 20MG [Concomitant]
     Active Substance: FAMOTIDINE
     Dates: start: 20200708
  4. VANCOMYCIN 1000MG [Concomitant]
     Active Substance: VANCOMYCIN
     Dates: start: 20200708, end: 20200710
  5. SERTRALINE 75MG [Concomitant]
     Active Substance: SERTRALINE HYDROCHLORIDE
     Dates: start: 20200708
  6. VALGANCICLOVIR 900MG [Concomitant]
     Dates: start: 20200708
  7. GABAPENTIN 200MG [Concomitant]
     Dates: start: 20200708
  8. PANTOPRAZOLE 40MG [Concomitant]
     Active Substance: PANTOPRAZOLE SODIUM
     Dates: start: 20200708
  9. TACROLIMUS. [Suspect]
     Active Substance: TACROLIMUS
     Indication: HEART TRANSPLANT
     Dates: start: 20200709, end: 20200715
  10. NYSTATIN 500,000UNITS [Concomitant]
     Dates: start: 20200708
  11. MYCOPHENOLATE 1500MG [Concomitant]
     Dates: start: 20200708

REACTIONS (3)
  - Manufacturing issue [None]
  - Product quality issue [None]
  - Drug level below therapeutic [None]

NARRATIVE: CASE EVENT DATE: 20200715
